FAERS Safety Report 23467839 (Version 1)
Quarter: 2024Q1

REPORT INFORMATION
  Report Type: Report from Study
  Country: US (occurrence: US)
  Receive Date: 20240201
  Receipt Date: 20240201
  Transmission Date: 20240410
  Serious: Yes (Other)
  Sender: FDA-Public Use
  Company Number: US-SEATTLE GENETICS-2024SGN00281

PATIENT
  Sex: Female

DRUGS (2)
  1. TUCATINIB [Suspect]
     Active Substance: TUCATINIB
     Indication: Breast cancer female
     Dosage: UNK
     Route: 065
  2. CAPECITABINE [Suspect]
     Active Substance: CAPECITABINE
     Indication: Breast cancer female
     Dosage: UNK
     Route: 065

REACTIONS (7)
  - Intestinal haemorrhage [Unknown]
  - Renal impairment [Unknown]
  - Retching [Unknown]
  - Fatigue [Unknown]
  - Drug intolerance [Unknown]
  - Stomatitis [Unknown]
  - Epistaxis [Unknown]
